FAERS Safety Report 4971844-2 (Version None)
Quarter: 2006Q2

REPORT INFORMATION
  Report Type: 
  Country: None (occurrence: None)
  Receive Date: 20060412
  Receipt Date: 20060412
  Transmission Date: 20061013
  Serious: Yes (Other)
  Sender: FDA-Public Use
  Company Number: None

PATIENT
  Age: 19 Year
  Sex: Male
  Weight: 99.3377 kg

DRUGS (1)
  1. CORICIDIN HBP COUGH + COLD (CHLORPHENIRAMINE MAL/DEX  TABLETS [Suspect]
     Indication: DRUG USE FOR UNKNOWN INDICATION
     Dosage: 24 TAB ORAL
     Route: 048
     Dates: start: 20030119, end: 20030119

REACTIONS (3)
  - HOMICIDE [None]
  - UNEVALUABLE EVENT [None]
  - VOMITING [None]
